FAERS Safety Report 8558839-7 (Version None)
Quarter: 2012Q3

REPORT INFORMATION
  Report Type: 
  Country: None (occurrence: None)
  Receive Date: 20120801
  Receipt Date: 20120718
  Transmission Date: 20120928
  Serious: No
  Sender: FDA-Public Use
  Company Number: US-009507513-1207USA007229

PATIENT

DRUGS (7)
  1. PEGASYS [Suspect]
  2. CLONAZEPAM [Concomitant]
  3. LACTULOSE [Concomitant]
  4. EXFORGE [Concomitant]
  5. TEKTURNA [Concomitant]
  6. VICTRELIS [Suspect]
     Indication: HEPATITIS C
     Dosage: 800 MG, TID
     Route: 048
     Dates: start: 20120301
  7. RIBASPHERE [Suspect]

REACTIONS (1)
  - PHLEBITIS [None]
